FAERS Safety Report 9508530 (Version 2)
Quarter: 2013Q3

REPORT INFORMATION
  Report Type: Spontaneous
  Country: US (occurrence: US)
  Receive Date: 20130909
  Receipt Date: 20130918
  Transmission Date: 20140515
  Serious: Yes (Death)
  Sender: FDA-Public Use
  Company Number: US-PFIZER INC-2013257994

PATIENT
  Age: 58 Year
  Sex: Male

DRUGS (1)
  1. CAMPTOSAR [Suspect]
     Indication: HEPATIC CANCER
     Dosage: 172 MG, UNK
     Dates: start: 20130408, end: 20130805

REACTIONS (1)
  - Death [Fatal]
